FAERS Safety Report 4411922-X (Version None)
Quarter: 2004Q3

REPORT INFORMATION
  Report Type: 
  Country: None (occurrence: None)
  Receive Date: 20040730
  Receipt Date: 20040305
  Transmission Date: 20050211
  Serious: No
  Sender: FDA-Public Use
  Company Number: US-GLAXOSMITHKLINE-A0501451A

PATIENT
  Age: 79 Year
  Sex: Female

DRUGS (2)
  1. ZANTAC [Suspect]
     Dosage: 900MG PER DAY
     Route: 048
  2. CARDIOVASCULAR MEDICATION [Concomitant]

REACTIONS (1)
  - VOMITING [None]
